FAERS Safety Report 13424857 (Version 2)
Quarter: 2017Q2

REPORT INFORMATION
  Report Type: Spontaneous
  Country: US (occurrence: US)
  Receive Date: 20170410
  Receipt Date: 20170616
  Transmission Date: 20170830
  Serious: No
  Sender: FDA-Public Use
  Company Number: US-LUNDBECK-DKLU2028447

PATIENT
  Sex: Female

DRUGS (1)
  1. NORTHERA [Suspect]
     Active Substance: DROXIDOPA
     Indication: PRODUCT USED FOR UNKNOWN INDICATION
     Dosage: SCHEDULE B
     Route: 065
     Dates: start: 20170313

REACTIONS (3)
  - Headache [Unknown]
  - Gastrointestinal pain [Unknown]
  - Heart rate increased [Unknown]
